FAERS Safety Report 5222839-5 (Version None)
Quarter: 2007Q1

REPORT INFORMATION
  Report Type: 
  Country: None (occurrence: None)
  Receive Date: 20070129
  Receipt Date: 20070119
  Transmission Date: 20070707
  Serious: Yes (Death)
  Sender: FDA-Public Use
  Company Number: FR-GLAXOSMITHKLINE-B0455539A

PATIENT
  Sex: Female
  Weight: 50 kg

DRUGS (4)
  1. ARIXTRA [Suspect]
     Dosage: 2.5MG PER DAY
     Route: 058
  2. CELLCEPT [Concomitant]
  3. CORTICOID [Concomitant]
  4. PLASMAPHERESIS [Concomitant]

REACTIONS (4)
  - MUSCLE HAEMORRHAGE [None]
  - RENAL DISORDER [None]
  - RETROPERITONEAL HAEMORRHAGE [None]
  - SHOCK [None]
